FAERS Safety Report 24722839 (Version 5)
Quarter: 2025Q2

REPORT INFORMATION
  Report Type: Report from Study
  Country: CN (occurrence: CN)
  Receive Date: 20241211
  Receipt Date: 20250603
  Transmission Date: 20250716
  Serious: Yes (Death, Other)
  Sender: NOVARTIS
  Company Number: CN-002147023-NVSC2024CN230950

PATIENT
  Age: 51 Year
  Sex: Female
  Weight: 43 kg

DRUGS (1)
  1. FEMARA [Suspect]
     Active Substance: LETROZOLE
     Indication: Breast cancer
     Dosage: 2.5 MG, QD
     Route: 048
     Dates: start: 20221114, end: 20241112

REACTIONS (48)
  - Death [Fatal]
  - Haemolytic anaemia [Fatal]
  - Cerebrovascular accident [Unknown]
  - Depressed level of consciousness [Unknown]
  - Muscle strength abnormal [Unknown]
  - Hypoaesthesia [Recovering/Resolving]
  - Unresponsive to stimuli [Unknown]
  - Breast cancer metastatic [Unknown]
  - Malignant neoplasm progression [Unknown]
  - Anaemia [Unknown]
  - Pneumonia [Unknown]
  - Pulmonary oedema [Unknown]
  - Pneumonitis [Unknown]
  - Blood bilirubin increased [Unknown]
  - Pericardial effusion [Unknown]
  - Ocular icterus [Unknown]
  - Platelet count decreased [Unknown]
  - Listless [Unknown]
  - Aspartate aminotransferase increased [Unknown]
  - Pleural effusion [Unknown]
  - Hepatic mass [Unknown]
  - Abdominal pain [Unknown]
  - Nausea [Unknown]
  - Urinary occult blood positive [Unknown]
  - Sinus tachycardia [Unknown]
  - Bundle branch block right [Unknown]
  - Electrocardiogram low voltage [Unknown]
  - Chest discomfort [Unknown]
  - Tachypnoea [Unknown]
  - Irregular breathing [Unknown]
  - Peripheral coldness [Unknown]
  - Pulse abnormal [Unknown]
  - Hepatic lesion [Unknown]
  - Pancreatic mass [Unknown]
  - Red blood cell count decreased [Unknown]
  - Haematocrit decreased [Unknown]
  - Mean cell volume increased [Unknown]
  - Mean cell haemoglobin increased [Unknown]
  - Bilirubin conjugated increased [Unknown]
  - Eosinophil percentage decreased [Unknown]
  - Eosinophil count decreased [Unknown]
  - Basophil percentage increased [Unknown]
  - Basophil count increased [Unknown]
  - Red cell distribution width increased [Unknown]
  - Blood lactate dehydrogenase increased [Unknown]
  - Haemoglobin decreased [Unknown]
  - Blood alkaline phosphatase decreased [Unknown]
  - Protein urine present [Unknown]

NARRATIVE: CASE EVENT DATE: 20241112
